FAERS Safety Report 21361288 (Version 3)
Quarter: 2022Q4

REPORT INFORMATION
  Report Type: Spontaneous
  Country: HR (occurrence: HR)
  Receive Date: 20220921
  Receipt Date: 20221219
  Transmission Date: 20230113
  Serious: Yes (Hospitalization, Other)
  Sender: FDA-Public Use
  Company Number: HR-BRISTOL-MYERS SQUIBB COMPANY-2022-109060

PATIENT
  Age: 75 Year
  Sex: Female

DRUGS (1)
  1. OPDIVO [Suspect]
     Active Substance: NIVOLUMAB
     Indication: Renal cancer metastatic
     Dosage: 23 CYCLES- ONGOING: FREQUENCY: 4 WEEKS
     Dates: start: 202005

REACTIONS (10)
  - Peripheral swelling [Unknown]
  - Sleep disorder [Unknown]
  - Paraesthesia [Unknown]
  - Pain in extremity [Unknown]
  - Syncope [Unknown]
  - Dyspnoea [Unknown]
  - Chest pain [Unknown]
  - Nausea [Unknown]
  - Feeling abnormal [Unknown]
  - Dizziness postural [Unknown]

NARRATIVE: CASE EVENT DATE: 20200904
